FAERS Safety Report 8159206 (Version 2)
Quarter: 2014Q1

REPORT INFORMATION
  Report Type: Spontaneous
  Country: US (occurrence: US)
  Receive Date: 20110928
  Receipt Date: 20140313
  Transmission Date: 20141002
  Serious: Yes (Hospitalization)
  Sender: FDA-Public Use
  Company Number: US-RANBAXY-2011US-48383

PATIENT
  Age: 49 Year
  Sex: Female
  Weight: 59 kg

DRUGS (11)
  1. VERAPAMIL [Suspect]
     Indication: HYPERTENSION
     Dosage: 120 MG DAILY AT BEDTIME
     Route: 048
  2. NICOTINE [Interacting]
     Indication: SMOKING CESSATION THERAPY
     Dosage: PATCH 7 MG, AT BEDTIME
     Route: 065
  3. DIHYDROERGOTAMINE [Interacting]
     Indication: PAIN
     Dosage: UNK
     Route: 042
  4. HYDROCODONE/ACETAMINOPHEN [Concomitant]
     Indication: HEADACHE
     Dosage: UNK
     Route: 065
  5. GABAPENTIN [Concomitant]
     Indication: HEADACHE
     Dosage: UNK
     Route: 065
  6. LORAZEPAM [Concomitant]
     Indication: PRODUCT USED FOR UNKNOWN INDICATION
     Dosage: UNK, PRN
     Route: 048
  7. HALOPERIDOL [Concomitant]
     Indication: PRODUCT USED FOR UNKNOWN INDICATION
     Dosage: UNK
     Route: 065
  8. AMANTADINE [Concomitant]
     Indication: PRODUCT USED FOR UNKNOWN INDICATION
     Route: 065
  9. DULOXETINE [Concomitant]
     Indication: PRODUCT USED FOR UNKNOWN INDICATION
     Route: 065
  10. FENTANYL [Concomitant]
     Indication: PAIN
     Route: 065
  11. MORPHINE SULFATE [Concomitant]
     Indication: PRODUCT USED FOR UNKNOWN INDICATION
     Dosage: 15-30 MG EVERY 4 HOURS AS NEEDED
     Route: 048

REACTIONS (2)
  - Prinzmetal angina [Recovering/Resolving]
  - Drug interaction [Unknown]
